FAERS Safety Report 21709530 (Version 1)
Quarter: 2022Q4

REPORT INFORMATION
  Report Type: Report from Study
  Country: US (occurrence: US)
  Receive Date: 20221210
  Receipt Date: 20221210
  Transmission Date: 20230113
  Serious: Yes (Hospitalization)
  Sender: FDA-Public Use
  Company Number: US-ABBVIE-22K-163-4474269-00

PATIENT
  Sex: Male

DRUGS (1)
  1. HUMIRA [Suspect]
     Active Substance: ADALIMUMAB
     Indication: Colitis ulcerative
     Dosage: DRUG START DATE: FEB 2022
     Route: 058
     Dates: end: 2022

REACTIONS (6)
  - Myositis [Recovered/Resolved]
  - Myalgia [Recovered/Resolved]
  - Feeling abnormal [Recovered/Resolved]
  - Blood creatine phosphokinase decreased [Unknown]
  - Dehydration [Recovered/Resolved]
  - Gait disturbance [Recovered/Resolved]

NARRATIVE: CASE EVENT DATE: 20220101
